FAERS Safety Report 7106268-5 (Version None)
Quarter: 2010Q4

REPORT INFORMATION
  Report Type: 
  Country: None (occurrence: None)
  Receive Date: 20101116
  Receipt Date: 20101101
  Transmission Date: 20110411
  Serious: Yes (Disabling)
  Sender: FDA-Public Use
  Company Number: US-SHIRE-SPV1-2010-01941

PATIENT
  Sex: Female

DRUGS (4)
  1. ADDERALL XR 10 [Suspect]
     Indication: ATTENTION DEFICIT/HYPERACTIVITY DISORDER
     Dosage: 30 MG, UNKNOWN
     Route: 048
  2. ADDERALL XR 10 [Suspect]
     Dosage: 20 MG, UNKNOWN
     Route: 048
  3. ADDERALL XR 10 [Suspect]
     Dosage: 5 MG, 2X/DAY:BID (5MG IN THE MORNING AND 5 MG IN THE AFTERNOON)
     Route: 048
  4. MAS (MIXED AMPHETAMINE SALTS) [Suspect]
     Indication: ATTENTION DEFICIT/HYPERACTIVITY DISORDER
     Dosage: 5 MG, 2X/DAY:BID (5 MG IN THE MORNING AND THE AFTERNOON)

REACTIONS (4)
  - HYPERTONIA [None]
  - NEPHROLITHIASIS [None]
  - PELVIC PAIN [None]
  - POLLAKIURIA [None]
